FAERS Safety Report 18450708 (Version 5)
Quarter: 2022Q4

REPORT INFORMATION
  Report Type: Report from Study
  Country: JP (occurrence: JP)
  Receive Date: 20201102
  Receipt Date: 20221226
  Transmission Date: 20230113
  Serious: Yes (Hospitalization, Other)
  Sender: FDA-Public Use
  Company Number: JP-ONO-2020JP025941

PATIENT
  Age: 69 Year
  Sex: Male
  Weight: 76 kg

DRUGS (13)
  1. ETELCALCETIDE [Suspect]
     Active Substance: ETELCALCETIDE
     Indication: Hyperparathyroidism secondary
     Dosage: 5 MILLIGRAM, Q56H
     Route: 065
     Dates: start: 20190322, end: 20190423
  2. ETELCALCETIDE [Suspect]
     Active Substance: ETELCALCETIDE
     Dosage: 10 MILLIGRAM,Q56H
     Route: 065
     Dates: start: 20190425, end: 20191012
  3. ETELCALCETIDE [Suspect]
     Active Substance: ETELCALCETIDE
     Dosage: 5 MILLIGRAM, Q56H
     Route: 065
     Dates: start: 20200114, end: 20200222
  4. ETELCALCETIDE [Suspect]
     Active Substance: ETELCALCETIDE
     Dosage: 10 MILLIGRAM, Q56H
     Route: 065
     Dates: start: 20200225
  5. OXAROL [Concomitant]
     Active Substance: MAXACALCITOL
     Dosage: 2.5 MICROGRAM, Q56H
     Route: 065
     Dates: end: 20200111
  6. OXAROL [Concomitant]
     Active Substance: MAXACALCITOL
     Dosage: 2.5 MICROGRAM, Q56H
     Route: 065
     Dates: start: 20200225
  7. ERYTHROPOIETIN [Concomitant]
     Active Substance: ERYTHROPOIETIN
     Dosage: 2250 INTERNATIONAL UNIT, QWK
     Route: 065
     Dates: start: 20181225, end: 20191005
  8. ERYTHROPOIETIN [Concomitant]
     Active Substance: ERYTHROPOIETIN
     Dosage: 4500 INTERNATIONAL UNIT, QWK
     Route: 065
     Dates: start: 20191008, end: 20200229
  9. ERYTHROPOIETIN [Concomitant]
     Active Substance: ERYTHROPOIETIN
     Dosage: 750 INTERNATIONAL UNIT, QWK
     Route: 065
     Dates: start: 20200303, end: 20211012
  10. ERYTHROPOIETIN [Concomitant]
     Active Substance: ERYTHROPOIETIN
     Dosage: 2250 INTERNATIONAL UNIT, QWK
     Route: 065
     Dates: start: 20211019, end: 20220419
  11. FOSRENOL [Concomitant]
     Active Substance: LANTHANUM CARBONATE
     Dosage: 1500 MILLIGRAM, QD
     Route: 048
     Dates: end: 20201006
  12. FOSRENOL [Concomitant]
     Active Substance: LANTHANUM CARBONATE
     Dosage: 1500 MILLIGRAM, QD
     Route: 048
     Dates: start: 20201007
  13. LANTHANUM CARBONATE [Concomitant]
     Active Substance: LANTHANUM CARBONATE
     Dosage: 1500 MILLIGRAM, QD
     Route: 048
     Dates: start: 20201007

REACTIONS (3)
  - Appendicitis [Recovering/Resolving]
  - Aortic valve stenosis [Recovering/Resolving]
  - Cellulitis [Recovered/Resolved]

NARRATIVE: CASE EVENT DATE: 20190908
